FAERS Safety Report 9818276 (Version 2)
Quarter: 2013Q4

REPORT INFORMATION
  Report Type: Spontaneous
  Country: US (occurrence: None)
  Receive Date: 20131223
  Receipt Date: 20131223
  Transmission Date: 20140711
  Serious: No
  Sender: FDA-Public Use
  Company Number: 219384

PATIENT
  Age: 83 Year
  Sex: Male

DRUGS (4)
  1. PICATO GEL [Suspect]
     Indication: PRECANCEROUS SKIN LESION
     Route: 061
     Dates: start: 20121018
  2. PICATO GEL [Suspect]
     Indication: PRECANCEROUS SKIN LESION
     Route: 061
     Dates: start: 20121018
  3. LISINOPRIL [Concomitant]
  4. WARFARIN [Concomitant]

REACTIONS (2)
  - Erythema [None]
  - Drug administered at inappropriate site [None]
